FAERS Safety Report 8426958-1 (Version None)
Quarter: 2012Q2

REPORT INFORMATION
  Report Type: 
  Country: None (occurrence: None)
  Receive Date: 20120611
  Receipt Date: 20120601
  Transmission Date: 20120825
  Serious: Yes (Other)
  Sender: FDA-Public Use
  Company Number: US-JNJFOC-20120604142

PATIENT
  Sex: Male
  Weight: 91.63 kg

DRUGS (7)
  1. TRICOR [Concomitant]
     Indication: BLOOD CHOLESTEROL
     Route: 048
  2. FLOMAX [Concomitant]
     Indication: PROSTATIC DISORDER
     Route: 048
  3. RIVAROXABAN [Suspect]
     Indication: ATRIAL FIBRILLATION
     Route: 048
     Dates: start: 20120501, end: 20120501
  4. ZOCOR [Concomitant]
     Indication: BLOOD CHOLESTEROL
     Route: 048
  5. DITROPAN [Suspect]
     Indication: URINARY INCONTINENCE
     Route: 048
     Dates: start: 20110101
  6. COREG [Concomitant]
     Indication: BLOOD PRESSURE
     Route: 048
  7. COZAAR [Concomitant]
     Indication: BLOOD PRESSURE
     Route: 048

REACTIONS (5)
  - BLOOD URINE PRESENT [None]
  - BLADDER NEOPLASM [None]
  - BLOOD PRESSURE DECREASED [None]
  - EPISTAXIS [None]
  - PSYCHOMOTOR HYPERACTIVITY [None]
